FAERS Safety Report 4764854-1 (Version None)
Quarter: 2005Q3

REPORT INFORMATION
  Report Type: 
  Country: None (occurrence: None)
  Receive Date: 20050907
  Receipt Date: 20050823
  Transmission Date: 20060218
  Serious: Yes (Other)
  Sender: FDA-Public Use
  Company Number: 217138

PATIENT
  Sex: Male

DRUGS (1)
  1. RAPTIVA [Suspect]
     Dates: start: 20040201

REACTIONS (1)
  - CLEAR CELL CARCINOMA OF THE KIDNEY [None]
